FAERS Safety Report 7298053-9 (Version None)
Quarter: 2011Q1

REPORT INFORMATION
  Report Type: 
  Country: None (occurrence: None)
  Receive Date: 20110207
  Receipt Date: 20110125
  Transmission Date: 20110831
  Serious: Yes (Death)
  Sender: FDA-Public Use
  Company Number: B0697678A

PATIENT
  Age: 50 Year
  Sex: Male

DRUGS (4)
  1. LAMIVUDINE-HBV (FORMULATION UNKNOWN) (GENERIC) (LAMIVUDINE-HBV) [Suspect]
     Indication: SPLENIC MARGINAL ZONE LYMPHOMA
  2. DOXORUBICIN HCL [Suspect]
     Indication: SPLENIC MARGINAL ZONE LYMPHOMA
  3. VINCRISTINE [Suspect]
     Indication: SPLENIC MARGINAL ZONE LYMPHOMA
  4. PREDNISONE [Suspect]
     Indication: SPLENIC MARGINAL ZONE LYMPHOMA

REACTIONS (9)
  - DRUG RESISTANCE [None]
  - HEPATITIS B [None]
  - STEM CELL TRANSPLANT [None]
  - PROTHROMBIN TIME PROLONGED [None]
  - ASCITES [None]
  - MULTI-ORGAN FAILURE [None]
  - HEPATIC FAILURE [None]
  - GENERAL PHYSICAL HEALTH DETERIORATION [None]
  - HEPATIC ENCEPHALOPATHY [None]
